FAERS Safety Report 8581768-X (Version None)
Quarter: 2012Q3

REPORT INFORMATION
  Report Type: 
  Country: None (occurrence: None)
  Receive Date: 20120801
  Receipt Date: 20120801
  Transmission Date: 20120928
  Serious: No
  Sender: FDA-Public Use
  Company Number: None

PATIENT
  Age: 48 Year
  Sex: Male
  Weight: 149.687 kg

DRUGS (1)
  1. LEXAPRO [Suspect]
     Indication: DEPRESSION
     Dosage: 20 MG 1 PO AD
     Route: 048
     Dates: start: 20090807

REACTIONS (3)
  - SCREAMING [None]
  - PRODUCT SUBSTITUTION ISSUE [None]
  - VOMITING [None]
